FAERS Safety Report 4533726-X (Version None)
Quarter: 2004Q4

REPORT INFORMATION
  Report Type: 
  Country: None (occurrence: None)
  Receive Date: 20041221
  Receipt Date: 20041215
  Transmission Date: 20050328
  Serious: Yes (Hospitalization)
  Sender: FDA-Public Use
  Company Number: FR-GLAXOSMITHKLINE-B0361628A

PATIENT
  Age: 57 Year
  Sex: Male

DRUGS (3)
  1. FORTUM [Suspect]
     Indication: PROPHYLAXIS
     Dosage: 1G PER DAY
     Route: 042
     Dates: start: 20041105, end: 20041107
  2. AMIKLIN [Suspect]
     Indication: PROPHYLAXIS
     Route: 042
     Dates: start: 20041105, end: 20041106
  3. VANCOMYCIN [Suspect]
     Indication: PROPHYLAXIS
     Route: 042
     Dates: start: 20041105, end: 20041106

REACTIONS (6)
  - ACUTE GENERALISED EXANTHEMATOUS PUSTULOSIS [None]
  - BLOOD CREATININE INCREASED [None]
  - DRUG LEVEL INCREASED [None]
  - IMMUNE SYSTEM DISORDER [None]
  - PRURITUS [None]
  - RASH PUSTULAR [None]
